FAERS Safety Report 17191890 (Version 2)
Quarter: 2019Q4

REPORT INFORMATION
  Report Type: Report from Study
  Country: US (occurrence: US)
  Receive Date: 20191223
  Receipt Date: 20191224
  Transmission Date: 20200122
  Serious: Yes (Death)
  Sender: FDA-Public Use
  Company Number: US-TAIHO ONCOLOGY  INC-EU-2019-03928

PATIENT
  Age: 41 Year
  Sex: Male
  Weight: 89.89 kg

DRUGS (9)
  1. LONSURF [Suspect]
     Active Substance: TIPIRACIL HYDROCHLORIDE\TRIFLURIDINE
     Indication: CHOLANGIOCARCINOMA
  2. CYCLOBENZAPRINE. [Concomitant]
     Active Substance: CYCLOBENZAPRINE
     Dosage: NI
  3. MS CONTIN [Concomitant]
     Active Substance: MORPHINE SULFATE
     Dosage: NI
  4. OXYCODONE [Concomitant]
     Active Substance: OXYCODONE
     Dosage: NI
  5. DRONABINOL. [Concomitant]
     Active Substance: DRONABINOL
     Dosage: NI
  6. LONSURF [Suspect]
     Active Substance: TIPIRACIL HYDROCHLORIDE\TRIFLURIDINE
     Indication: METASTASES TO LIVER
     Dosage: CURRENT CYCLE 3
     Route: 048
     Dates: end: 20191111
  7. LIDOCAINE. [Concomitant]
     Active Substance: LIDOCAINE
     Dosage: NI
  8. STIVARGA [Concomitant]
     Active Substance: REGORAFENIB
     Dosage: NI
  9. NARCAN [Concomitant]
     Active Substance: NALOXONE HYDROCHLORIDE
     Dosage: NI

REACTIONS (3)
  - Disease progression [Fatal]
  - Pyrexia [Unknown]
  - Intentional product use issue [Unknown]

NARRATIVE: CASE EVENT DATE: 20191110
